FAERS Safety Report 22604228 (Version 1)
Quarter: 2023Q2

REPORT INFORMATION
  Report Type: Other
  Country: ZA (occurrence: None)
  Receive Date: 20230615
  Receipt Date: 20230615
  Transmission Date: 20230722
  Serious: No
  Sender: FDA-Public Use
  Company Number: ZA-ROCHE-3365833

PATIENT
  Sex: Female

DRUGS (1)
  1. OCREVUS [Suspect]
     Active Substance: OCRELIZUMAB
     Indication: Multiple sclerosis
     Dosage: THEN 600 MG EVERY 6 MONTHS
     Route: 041
     Dates: start: 20220810

REACTIONS (3)
  - Magnetic resonance imaging head abnormal [Unknown]
  - Demyelination [Unknown]
  - Paranasal sinus mucosal hypertrophy [Unknown]
